FAERS Safety Report 8319465-8 (Version None)
Quarter: 2012Q2

REPORT INFORMATION
  Report Type: 
  Country: None (occurrence: None)
  Receive Date: 20120426
  Receipt Date: 20120426
  Transmission Date: 20120825
  Serious: No
  Sender: FDA-Public Use
  Company Number: None

PATIENT
  Age: 84 Year
  Sex: Female

DRUGS (2)
  1. REVLIMID [Suspect]
     Indication: MYELODYSPLASTIC SYNDROME
     Dosage: REVLIMID 5 MG 5XWK X21D/28D ORALLY
     Route: 048
     Dates: start: 20101101, end: 20101201
  2. REVLIMID [Suspect]
     Indication: MYELODYSPLASTIC SYNDROME
     Dosage: REVLIMID 5 MG 5XWK X21D/28D ORALLY
     Route: 048
     Dates: start: 20110601

REACTIONS (2)
  - LEUKOPENIA [None]
  - NEUTROPENIA [None]
